FAERS Safety Report 11189381 (Version 1)
Quarter: 2015Q2

REPORT INFORMATION
  Report Type: Spontaneous
  Country: US (occurrence: None)
  Receive Date: 20150612
  Receipt Date: 20150612
  Transmission Date: 20150821
  Serious: Yes (Hospitalization)
  Sender: FDA-Public Use
  Company Number: None

PATIENT
  Age: 85 Year
  Sex: Female
  Weight: 64 kg

DRUGS (2)
  1. ONDANESTRON [Concomitant]
  2. TORADOL [Suspect]
     Active Substance: KETOROLAC TROMETHAMINE

REACTIONS (2)
  - Blood creatinine increased [None]
  - Dialysis [None]

NARRATIVE: CASE EVENT DATE: 20150519
